FAERS Safety Report 23768451 (Version 1)
Quarter: 2024Q2

REPORT INFORMATION
  Report Type: Spontaneous
  Country: US (occurrence: None)
  Receive Date: 20240419
  Receipt Date: 20240419
  Transmission Date: 20240715
  Serious: Yes (Life-Threatening, Hospitalization, Disabling)
  Sender: FDA-Public Use
  Company Number: None

PATIENT
  Age: 64 Year
  Sex: Female
  Weight: 54 kg

DRUGS (7)
  1. RECLAST [Suspect]
     Active Substance: ZOLEDRONIC ACID
     Indication: Osteopenia
     Route: 042
  2. Five Reclast infusions; over five years [Concomitant]
  3. TRAMADOL [Concomitant]
  4. VITAMINS [Concomitant]
     Active Substance: VITAMINS
  5. Viactive for calcium [Concomitant]
  6. TYLENOL [Concomitant]
     Active Substance: ACETAMINOPHEN
  7. IBUPROFEN [Concomitant]
     Active Substance: IBUPROFEN

REACTIONS (14)
  - Vomiting [None]
  - Abnormal behaviour [None]
  - Syncope [None]
  - Dyspnoea [None]
  - Agonal respiration [None]
  - Pulse absent [None]
  - Rhabdomyolysis [None]
  - Compression fracture [None]
  - Hyponatraemia [None]
  - Blood potassium decreased [None]
  - Blood calcium decreased [None]
  - Seizure [None]
  - Tongue biting [None]
  - Infusion related reaction [None]

NARRATIVE: CASE EVENT DATE: 20240308
